FAERS Safety Report 5368523-9 (Version None)
Quarter: 2007Q2

REPORT INFORMATION
  Report Type: 
  Country: None (occurrence: None)
  Receive Date: 20070621
  Receipt Date: 20070612
  Transmission Date: 20071010
  Serious: Yes (Life-Threatening, Hospitalization)
  Sender: FDA-Public Use
  Company Number: 163-21880-06100724

PATIENT
  Age: 76 Year
  Sex: Female

DRUGS (15)
  1. REVLIMID [Suspect]
     Indication: CYTOGENETIC ANALYSIS ABNORMAL
     Dosage: 25 MG, DAILY FOR 21 DAYS, ORAL
     Route: 048
     Dates: start: 20060902, end: 20060912
  2. REVLIMID [Suspect]
     Indication: MULTIPLE MYELOMA
     Dosage: 25 MG, DAILY FOR 21 DAYS, ORAL
     Route: 048
     Dates: start: 20060902, end: 20060912
  3. HYDROMORPHONE HCL [Concomitant]
  4. TOPROL-XL [Concomitant]
  5. MAGNESIUM (MAGNESIUM) (CAPSULES) [Concomitant]
  6. COLACE (DOCUSATE SODIUM) [Concomitant]
  7. PERI-COLACE (PERI-COCALCE) [Concomitant]
  8. POTASSIUM CL (POTASSIUM CHLORIDE) [Concomitant]
  9. PROMETHAZINE [Concomitant]
  10. PRILOSEC [Concomitant]
  11. METOPROLOL TARTRATE [Concomitant]
  12. MULTIVITAMIN [Concomitant]
  13. ASCORBIC ACID [Concomitant]
  14. VICODIN [Concomitant]
  15. DEXAMETHASONE TAB [Concomitant]

REACTIONS (4)
  - DIALYSIS [None]
  - HYPERCALCAEMIA [None]
  - MULTIPLE MYELOMA [None]
  - RENAL FAILURE ACUTE [None]
